FAERS Safety Report 5557649-2 (Version None)
Quarter: 2007Q4

REPORT INFORMATION
  Report Type: 
  Country: None (occurrence: None)
  Receive Date: 20071214
  Receipt Date: 20071204
  Transmission Date: 20080405
  Serious: Yes (Other)
  Sender: FDA-Public Use
  Company Number: PHHO2006AU14025

PATIENT
  Age: 59 Year
  Sex: Female

DRUGS (7)
  1. ZOLEDRONIC ACID [Suspect]
     Indication: MULTIPLE MYELOMA
     Route: 042
     Dates: start: 20050323, end: 20060401
  2. ZOLEDRONIC ACID [Suspect]
     Route: 042
     Dates: start: 20061001
  3. PREDNISOLONE [Concomitant]
     Indication: MULTIPLE MYELOMA
  4. THALIDOMIDE [Concomitant]
     Indication: MULTIPLE MYELOMA
  5. VINCRISTINE [Suspect]
  6. DOXORUBICIN HCL [Suspect]
  7. DEXA [Suspect]

REACTIONS (3)
  - BONE LESION [None]
  - OSTEONECROSIS [None]
  - PERIODONTAL INFECTION [None]
